FAERS Safety Report 9431928 (Version 1)
Quarter: 2013Q3

REPORT INFORMATION
  Report Type: Report from Study
  Country: US (occurrence: US)
  Receive Date: 20130731
  Receipt Date: 20130731
  Transmission Date: 20140515
  Serious: Yes (Other)
  Sender: FDA-Public Use
  Company Number: PHEH2013US016073

PATIENT
  Age: 59 Year
  Sex: Female

DRUGS (2)
  1. EXTAVIA [Suspect]
     Indication: MULTIPLE SCLEROSIS
     Dosage: UNK UKN, QOD
     Route: 058
  2. METHOTREXATE [Concomitant]
     Dosage: UNK UKN, QW

REACTIONS (3)
  - Anxiety [Unknown]
  - Weight increased [Unknown]
  - Insomnia [Unknown]
